FAERS Safety Report 15440363 (Version 1)
Quarter: 2018Q3

REPORT INFORMATION
  Report Type: Report from Study
  Country: GB (occurrence: GB)
  Receive Date: 20180928
  Receipt Date: 20180928
  Transmission Date: 20181010
  Serious: Yes (Life-Threatening, Hospitalization, Other)
  Sender: FDA-Public Use
  Company Number: GB-PFIZER INC-2018385637

PATIENT
  Age: 75 Year
  Sex: Male

DRUGS (9)
  1. NIVOLUMAB [Suspect]
     Active Substance: NIVOLUMAB
     Dosage: 480 MG, MONTHLY ( QMO)
     Route: 042
     Dates: start: 20180615
  2. GENTAMICIN SULFATE. [Suspect]
     Active Substance: GENTAMICIN SULFATE
     Dosage: UNK
     Route: 065
  3. NIVOLUMAB [Suspect]
     Active Substance: NIVOLUMAB
     Dosage: 260 MG, 2X/WEEK (Q2WK)
     Route: 042
     Dates: start: 20170101, end: 20180511
  4. LAXIDO [Concomitant]
     Active Substance: POLYETHYLENE GLYCOL 3350\POTASSIUM CHLORIDE\SODIUM BICARBONATE\SODIUM CHLORIDE
     Dosage: UNK
     Route: 065
  5. NIVOLUMAB [Suspect]
     Active Substance: NIVOLUMAB
     Indication: RENAL CELL CARCINOMA
     Dosage: 260 MG, 2X/WEEK (Q2WK)
     Route: 042
     Dates: start: 20170101, end: 20180511
  6. NIVOLUMAB [Suspect]
     Active Substance: NIVOLUMAB
     Dosage: 260 MG, 2X/WEEK (Q2WK)
     Route: 042
     Dates: start: 20170101, end: 20180511
  7. TAMSULOSIN [Concomitant]
     Active Substance: TAMSULOSIN
     Dosage: UNK
     Route: 065
  8. VERAPAMIL [Concomitant]
     Active Substance: VERAPAMIL HYDROCHLORIDE
     Dosage: UNK
     Route: 065
  9. WARFARIN [Concomitant]
     Active Substance: WARFARIN
     Dosage: UNK
     Route: 065

REACTIONS (9)
  - Off label use [Unknown]
  - Constipation [Recovering/Resolving]
  - Toxicity to various agents [Unknown]
  - Blood bilirubin increased [Not Recovered/Not Resolved]
  - Rash [Recovering/Resolving]
  - Dysuria [Unknown]
  - Diarrhoea [Not Recovered/Not Resolved]
  - Liver function test abnormal [Not Recovered/Not Resolved]
  - Bladder disorder [Recovering/Resolving]

NARRATIVE: CASE EVENT DATE: 20180410
